FAERS Safety Report 9495467 (Version 5)
Quarter: 2014Q4

REPORT INFORMATION
  Report Type: Spontaneous
  Country: DE (occurrence: DE)
  Receive Date: 20130903
  Receipt Date: 20141219
  Transmission Date: 20150529
  Serious: Yes (Hospitalization)
  Sender: FDA-Public Use
  Company Number: DE-SANOFI-AVENTIS-2013SA086802

PATIENT
  Age: 47 Year
  Sex: Female

DRUGS (11)
  1. MAGNESIUM [Concomitant]
     Active Substance: MAGNESIUM
  2. TENORMIN [Concomitant]
     Active Substance: ATENOLOL
     Indication: HYPERTENSION
     Dates: start: 20130425
  3. CALCIUM [Concomitant]
     Active Substance: CALCIUM
  4. VISMODEGIB [Concomitant]
     Active Substance: VISMODEGIB
     Indication: BASAL CELL CARCINOMA
     Route: 048
     Dates: start: 20130327
  5. ESTROFEM [Concomitant]
     Active Substance: ESTRADIOL CYPIONATE
     Indication: HYSTERECTOMY
     Dates: start: 200901, end: 20130423
  6. COLECALCIFEROL [Concomitant]
     Active Substance: CHOLECALCIFEROL
     Indication: HYSTERECTOMY
     Dosage: TOTAL DAILY DOSE: 1000IE
     Dates: start: 201001
  7. ESTROFEM [Concomitant]
     Active Substance: ESTRADIOL CYPIONATE
     Indication: HYSTERECTOMY
     Dates: start: 20130425
  8. TENORMIN [Concomitant]
     Active Substance: ATENOLOL
     Indication: HYPERTENSION
     Dates: start: 200801, end: 20130423
  9. EUTHYROX [Concomitant]
     Active Substance: LEVOTHYROXINE SODIUM
     Indication: HYPOTHYROIDISM
     Dates: start: 200701
  10. UREA. [Concomitant]
     Active Substance: UREA
     Indication: DRY SKIN
     Dosage: DAILY DOSE 1-2
     Dates: start: 20130424
  11. CLEXANE [Suspect]
     Active Substance: ENOXAPARIN SODIUM
     Indication: THROMBOSIS
     Route: 065
     Dates: start: 20130701, end: 20130810

REACTIONS (1)
  - Arthralgia [Recovered/Resolved]

NARRATIVE: CASE EVENT DATE: 20130701
